FAERS Safety Report 8788681 (Version 1)
Quarter: 2012Q4

REPORT INFORMATION
  Report Type: 
  Country: US (occurrence: US)
  Receive Date: 20120917
  Receipt Date: 20120917
  Transmission Date: 20130627
  Serious: Yes (Hospitalization)
  Sender: FDA-Public Use
  Company Number: US-AMGEN-USASP2012058096

PATIENT
  Age: 62 Year
  Sex: Female

DRUGS (3)
  1. ENBREL [Suspect]
     Indication: PSORIATIC ARTHROPATHY
     Dosage: 50 mg, qwk
     Route: 058
     Dates: start: 20110905
  2. METHOTREXATE [Concomitant]
     Dosage: UNK
     Dates: start: 201106, end: 201111
  3. HUMIRA [Concomitant]
     Dosage: UNK

REACTIONS (8)
  - Confusional state [Unknown]
  - Memory impairment [Unknown]
  - Pneumonia [Recovered/Resolved]
  - Arthralgia [Not Recovered/Not Resolved]
  - Skin plaque [Not Recovered/Not Resolved]
  - Nephrolithiasis [Not Recovered/Not Resolved]
  - Abasia [Recovered/Resolved]
  - Hydronephrosis [Not Recovered/Not Resolved]
